FAERS Safety Report 6404483-7 (Version None)
Quarter: 2009Q4

REPORT INFORMATION
  Report Type: 
  Country: None (occurrence: None)
  Receive Date: 20091016
  Receipt Date: 20090810
  Transmission Date: 20100525
  Serious: No
  Sender: FDA-Public Use
  Company Number: US-ALEXION-A200900645

PATIENT
  Sex: Female

DRUGS (4)
  1. SOLIRIS [Suspect]
     Indication: PAROXYSMAL NOCTURNAL HAEMOGLOBINURIA
     Dosage: 600 MG, QW
     Route: 042
     Dates: start: 20080207, end: 20080228
  2. SOLIRIS [Suspect]
     Dosage: 900 MG, Q2W
     Route: 042
     Dates: start: 20080306
  3. SOLIRIS [Suspect]
     Dosage: OFF SCHEDULE
     Route: 042
     Dates: start: 20081101, end: 20081201
  4. SOLIRIS [Suspect]
     Dosage: UNK
     Route: 042
     Dates: start: 20090101

REACTIONS (4)
  - HAEMOGLOBIN DECREASED [None]
  - NASOPHARYNGITIS [None]
  - OROPHARYNGEAL PAIN [None]
  - PYREXIA [None]
